FAERS Safety Report 22269936 (Version 1)
Quarter: 2023Q2

REPORT INFORMATION
  Report Type: Spontaneous
  Country: CA (occurrence: CA)
  Receive Date: 20230501
  Receipt Date: 20230501
  Transmission Date: 20230722
  Serious: Yes (Other)
  Sender: FDA-Public Use
  Company Number: None

PATIENT
  Age: 59 Year
  Sex: Male

DRUGS (3)
  1. SEMAGLUTIDE [Suspect]
     Active Substance: SEMAGLUTIDE
     Indication: Diabetes mellitus
     Dosage: 1 EVERY 1 WEEKS
     Route: 058
  2. CONTRAVE [Suspect]
     Active Substance: BUPROPION HYDROCHLORIDE\NALTREXONE HYDROCHLORIDE
     Dosage: 1 EVERY 24 HOURS FOR 2 WEEKS;  1.0 DOSAGE FORMS: 1 EVERY 12 HOURS (5 DAYS)
     Route: 048
  3. CONTRAVE [Suspect]
     Active Substance: BUPROPION HYDROCHLORIDE\NALTREXONE HYDROCHLORIDE
     Indication: Weight control
     Dosage: 1 EVERY 24 HOURS (DURATION : 2 WEEKS)
     Route: 048

REACTIONS (6)
  - Tension headache [Recovered/Resolved]
  - Middle insomnia [Recovered/Resolved]
  - Therapy cessation [Recovered/Resolved]
  - Pancreatitis [Recovered/Resolved]
  - Fatigue [Recovered/Resolved]
  - Drug titration error [Recovered/Resolved]
